FAERS Safety Report 23647439 (Version 1)
Quarter: 2024Q1

REPORT INFORMATION
  Report Type: Spontaneous
  Country: US (occurrence: US)
  Receive Date: 20240319
  Receipt Date: 20240319
  Transmission Date: 20240410
  Serious: Yes (Hospitalization, Other)
  Sender: FDA-Public Use
  Company Number: US-GRAVITIPHARMA-GRA-2403-US-LIT-0043

PATIENT
  Age: 33 Year
  Sex: Female

DRUGS (2)
  1. FUROSEMIDE [Suspect]
     Active Substance: FUROSEMIDE
     Indication: Pulmonary oedema
     Route: 042
  2. Immune-globulin [Concomitant]
     Indication: Product used for unknown indication

REACTIONS (1)
  - Drug ineffective [Unknown]
